FAERS Safety Report 5466065-3 (Version None)
Quarter: 2007Q3

REPORT INFORMATION
  Report Type: 
  Country: None (occurrence: None)
  Receive Date: 20070919
  Receipt Date: 20070913
  Transmission Date: 20080115
  Serious: Yes (Death, Hospitalization)
  Sender: FDA-Public Use
  Company Number: 028-C5013-07031002

PATIENT
  Age: 80 Year
  Sex: Female

DRUGS (12)
  1. CC-5013 (LENALIDOMIDE) (CAPSULES) [Suspect]
     Indication: MULTIPLE MYELOMA
     Dosage: 10 MG, 1 IN 1 D, ORAL
     Route: 048
     Dates: start: 20061021, end: 20070226
  2. DEXAMETHASONE TAB [Suspect]
     Indication: MULTIPLE MYELOMA
     Dosage: DAYS 1-4, ORAL
     Route: 048
     Dates: start: 20061021, end: 20070303
  3. METOPROLOL TARTRATE [Concomitant]
  4. LYRICA [Concomitant]
  5. EC ASA (ACETYLSALICYLIC ACID) [Concomitant]
  6. VENTOLIN [Concomitant]
  7. SPIRONOLACTONE [Concomitant]
  8. HYDROCORTISONE [Concomitant]
  9. CLONAZEPAM [Concomitant]
  10. HEPARIN [Concomitant]
  11. ATROVENT [Concomitant]
  12. ATIVAN [Concomitant]

REACTIONS (7)
  - BLOOD CREATININE INCREASED [None]
  - FLUSHING [None]
  - IMMUNOSUPPRESSION [None]
  - LOBAR PNEUMONIA [None]
  - PLATELET COUNT DECREASED [None]
  - RESPIRATORY FAILURE [None]
  - WHITE BLOOD CELL COUNT DECREASED [None]
